FAERS Safety Report 8226910-5 (Version None)
Quarter: 2012Q1

REPORT INFORMATION
  Report Type: 
  Country: None (occurrence: None)
  Receive Date: 20120322
  Receipt Date: 20120309
  Transmission Date: 20120608
  Serious: No
  Sender: FDA-Public Use
  Company Number: US-BAYER-2012-024575

PATIENT
  Sex: Male

DRUGS (2)
  1. LEVITRA [Suspect]
     Indication: ERECTILE DYSFUNCTION
  2. LEVITRA [Suspect]
     Indication: CEREBROVASCULAR ACCIDENT

REACTIONS (1)
  - THERAPEUTIC RESPONSE UNEXPECTED [None]
